FAERS Safety Report 7425540-2 (Version None)
Quarter: 2011Q2

REPORT INFORMATION
  Report Type: 
  Country: None (occurrence: None)
  Receive Date: 20110412
  Receipt Date: 20110329
  Transmission Date: 20111010
  Serious: Yes (Hospitalization, Other)
  Sender: FDA-Public Use
  Company Number: CIP11000054

PATIENT
  Age: 57 Year
  Sex: Female

DRUGS (13)
  1. LEXAPRO [Concomitant]
  2. CELEXA [Concomitant]
  3. FOSAMAX [Suspect]
     Indication: OSTEOPENIA
     Dosage: 70 MG ONCE WEEKLY, ORAL
     Route: 048
     Dates: start: 20070101, end: 20081201
  4. TRIAMCINOLONE [Concomitant]
  5. VALTREX [Concomitant]
  6. AMOXICILLIN TRIHYDRATE W/CLAVULANTE POTASSIUM (AMOXICILLIN TRIHYDRATE, [Concomitant]
  7. ACTONEL [Suspect]
     Indication: OSTEOPENIA
     Dosage: 35 MG ONCE WEEKLY, ORAL
     Route: 048
     Dates: start: 20030515, end: 20071022
  8. AMBIEN [Concomitant]
  9. CITALOPRAM HBR (CITALOPRAM HYDROBROMIDE) [Concomitant]
  10. TRAZODONE (TRAZODONE) [Concomitant]
  11. CALCIUM PLUS D3 (CALCIUM, COLECALCIFEROL) [Concomitant]
  12. AMITRIPTYLINE /00002202/ (AMITRIPTYLINE HYDROCHLORIDE) [Concomitant]
  13. WELLBUTRIN XL [Concomitant]

REACTIONS (17)
  - DEVICE BREAKAGE [None]
  - WEIGHT BEARING DIFFICULTY [None]
  - PLEURAL EFFUSION [None]
  - STRESS FRACTURE [None]
  - DEVICE FAILURE [None]
  - PNEUMONIA [None]
  - MOBILITY DECREASED [None]
  - IMPAIRED HEALING [None]
  - FRACTURE NONUNION [None]
  - LOW TURNOVER OSTEOPATHY [None]
  - PATHOLOGICAL FRACTURE [None]
  - FEMUR FRACTURE [None]
  - ARTHRALGIA [None]
  - BONE DISORDER [None]
  - FALL [None]
  - HAEMATOCRIT DECREASED [None]
  - VITAMIN D DECREASED [None]
